FAERS Safety Report 21106574 (Version 1)
Quarter: 2022Q3

REPORT INFORMATION
  Report Type: Spontaneous
  Country: US (occurrence: None)
  Receive Date: 20220720
  Receipt Date: 20220720
  Transmission Date: 20221027
  Serious: No
  Sender: FDA-Public Use
  Company Number: None

PATIENT
  Sex: Male
  Weight: 100.7 kg

DRUGS (1)
  1. LENALIDOMIDE [Suspect]
     Active Substance: LENALIDOMIDE
     Dates: end: 20220705

REACTIONS (3)
  - Gastrointestinal neuroendocrine carcinoma [None]
  - Colorectal adenocarcinoma [None]
  - Therapy cessation [None]

NARRATIVE: CASE EVENT DATE: 20220617
